FAERS Safety Report 7366010-X (Version None)
Quarter: 2011Q1

REPORT INFORMATION
  Report Type: 
  Country: None (occurrence: None)
  Receive Date: 20110322
  Receipt Date: 20110308
  Transmission Date: 20110831
  Serious: Yes (Hospitalization)
  Sender: FDA-Public Use
  Company Number: US-MYLANLABS-2011S1005258

PATIENT
  Age: 28 Year
  Sex: Female

DRUGS (13)
  1. VINCRISTINE [Suspect]
     Indication: BURKITT'S LYMPHOMA
     Dosage: ON DAY 1 OF IVAC REGIMEN
     Route: 042
  2. PREDNISONE [Suspect]
     Indication: BURKITT'S LYMPHOMA
     Dosage: ON DAYS 1-5 OF IVAC REGIMEN
     Route: 048
  3. CYTARABINE [Suspect]
     Dosage: FOUR DOSES ON DAYS 25/26 AND 70/71 OF IVAC REGIMEN
     Route: 042
  4. ALLOPURINOL [Concomitant]
     Route: 065
  5. CYCLOPHOSPHAMIDE [Suspect]
     Indication: BURKITT'S LYMPHOMA
     Dosage: ON DAY 1 OF IVAC REGIMEN
     Route: 042
  6. MESNA [Suspect]
     Indication: BURKITT'S LYMPHOMA
     Dosage: ON DAYS 25-29 AND 70-74 OF IVAC REGIMEN
     Route: 042
  7. FILGRASTIM [Concomitant]
     Route: 065
  8. CYCLOPHOSPHAMIDE [Suspect]
     Dosage: ON DAYS 2-5 OF IVAC REGIMEN
     Route: 042
  9. ETOPOSIDE [Suspect]
     Indication: BURKITT'S LYMPHOMA
     Dosage: ON DAYS 25-29 AND 70-74 OF IVAC REGIMEN
     Route: 042
  10. CYTARABINE [Suspect]
     Indication: BURKITT'S LYMPHOMA
     Dosage: ON DAYS 3, 5, 21 AND 45 OF IVAC REGIMEN
     Route: 037
  11. DOXORUBICIN HCL [Suspect]
     Indication: BURKITT'S LYMPHOMA
     Dosage: ON DAY 1 OF IVAC REGIMEN
     Route: 042
  12. IFOSFAMIDE [Suspect]
     Indication: BURKITT'S LYMPHOMA
     Dosage: ON DAYS 25-29 AND 70-74 OF IVAC REGIMEN
     Route: 042
  13. RITUXIMAB [Suspect]
     Indication: BURKITT'S LYMPHOMA
     Dosage: ON DAYS 13, 18, 39, 42, 59, 62 AND 89 OF IVAC REGIMEN
     Route: 065

REACTIONS (6)
  - VOMITING [None]
  - EROSIVE OESOPHAGITIS [None]
  - INTRA-UTERINE DEATH [None]
  - FOETAL GROWTH RESTRICTION [None]
  - FEBRILE NEUTROPENIA [None]
  - DRUG EXPOSURE DURING PREGNANCY [None]
